FAERS Safety Report 7205604-9 (Version None)
Quarter: 2010Q4

REPORT INFORMATION
  Report Type: 
  Country: None (occurrence: None)
  Receive Date: 20101231
  Receipt Date: 20101222
  Transmission Date: 20110411
  Serious: Yes (Hospitalization)
  Sender: FDA-Public Use
  Company Number: FR-NOVOPROD-320684

PATIENT
  Age: 68 Year
  Sex: Male

DRUGS (13)
  1. NOVORAPID [Suspect]
     Indication: PRODUCT USED FOR UNKNOWN INDICATION
     Dosage: UNK
     Route: 058
     Dates: start: 20101028, end: 20101108
  2. MOPRAL                             /00661201/ [Suspect]
     Indication: PRODUCT USED FOR UNKNOWN INDICATION
     Dosage: UNK
     Route: 048
     Dates: start: 20101028, end: 20101108
  3. BUMEX [Suspect]
     Indication: PRODUCT USED FOR UNKNOWN INDICATION
     Dosage: UNK
     Route: 048
     Dates: start: 20101028, end: 20101108
  4. SPIRONOLACTONE [Suspect]
     Indication: PRODUCT USED FOR UNKNOWN INDICATION
     Dosage: UNK
     Route: 048
     Dates: start: 20101028, end: 20101108
  5. LOVENOX [Suspect]
     Indication: PRODUCT USED FOR UNKNOWN INDICATION
     Dosage: UNK
     Route: 058
     Dates: start: 20101028, end: 20101107
  6. DOLIPRANE [Suspect]
     Indication: PRODUCT USED FOR UNKNOWN INDICATION
     Dosage: UNK
     Route: 048
     Dates: start: 20101028, end: 20101108
  7. PRAVASTATIN [Concomitant]
     Dosage: UNK
  8. DIAMICRON [Concomitant]
  9. XANAX [Concomitant]
     Dosage: UNK
     Dates: start: 20101102, end: 20101105
  10. ARIXTRA [Concomitant]
     Dosage: UNK
     Dates: start: 20101107
  11. XYZAL [Concomitant]
     Dosage: UNK
     Dates: start: 20101108
  12. DERMOVAL                           /00008501/ [Concomitant]
     Dosage: UNK
     Dates: start: 20101108
  13. ATARAX [Concomitant]
     Dosage: UNK
     Dates: start: 20101108

REACTIONS (5)
  - CREATININE RENAL CLEARANCE DECREASED [None]
  - CYTOLYTIC HEPATITIS [None]
  - EOSINOPHILIA [None]
  - RASH MACULO-PAPULAR [None]
  - THROMBOCYTOPENIA [None]
